FAERS Safety Report 4481274-8 (Version None)
Quarter: 2004Q4

REPORT INFORMATION
  Report Type: 
  Country: None (occurrence: None)
  Receive Date: 20040923
  Receipt Date: 20040809
  Transmission Date: 20050328
  Serious: No
  Sender: FDA-Public Use
  Company Number: USA030536369

PATIENT
  Age: 59 Year
  Sex: Female
  Weight: 48 kg

DRUGS (10)
  1. FORTEO [Suspect]
     Indication: OSTEOPOROSIS
     Dosage: 20 UG DAY
     Dates: start: 20021201, end: 20031001
  2. DANOCRINE (DANAZOL) [Concomitant]
  3. GUANFACINE HCL [Concomitant]
  4. PAXIL [Concomitant]
  5. PREMARIN [Concomitant]
  6. METHYLPREDNISOLONE [Concomitant]
  7. CLIMARA [Concomitant]
  8. DIOVAN [Concomitant]
  9. LORAZEPAM [Concomitant]
  10. VALTREX [Concomitant]

REACTIONS (7)
  - DIZZINESS [None]
  - FATIGUE [None]
  - HYPERTENSION [None]
  - INJECTION SITE ERYTHEMA [None]
  - INJECTION SITE STINGING [None]
  - NAUSEA [None]
  - RASH [None]
